FAERS Safety Report 8421692-6 (Version None)
Quarter: 2012Q2

REPORT INFORMATION
  Report Type: 
  Country: None (occurrence: None)
  Receive Date: 20120608
  Receipt Date: 20120530
  Transmission Date: 20120825
  Serious: Yes (Hospitalization, Other)
  Sender: FDA-Public Use
  Company Number: US-ASTRAZENECA-2012SE19205

PATIENT
  Age: 45 Year
  Sex: Female
  Weight: 61.7 kg

DRUGS (12)
  1. KLONOPIN [Concomitant]
     Indication: ANXIETY
  2. KLONOPIN [Concomitant]
     Indication: BIPOLAR DISORDER
  3. SEROQUEL [Suspect]
     Indication: BIPOLAR I DISORDER
     Route: 048
     Dates: start: 20110101
  4. SEROQUEL [Suspect]
     Indication: BIPOLAR DISORDER
     Route: 048
     Dates: start: 20110101
  5. SEROQUEL [Suspect]
     Route: 048
     Dates: start: 20101209, end: 20120301
  6. SEROQUEL [Suspect]
     Route: 048
     Dates: start: 20101209, end: 20120301
  7. SEROQUEL [Suspect]
     Indication: SLEEP DISORDER
     Route: 048
     Dates: start: 20110101
  8. CELEXA [Concomitant]
     Indication: ANXIETY
  9. SEROQUEL [Suspect]
     Indication: ANXIETY
     Route: 048
     Dates: start: 20110101
  10. SEROQUEL [Suspect]
     Route: 048
     Dates: start: 20101209, end: 20120301
  11. SEROQUEL [Suspect]
     Route: 048
     Dates: start: 20101209, end: 20120301
  12. CELEXA [Concomitant]
     Indication: DEPRESSION

REACTIONS (9)
  - HYPOAESTHESIA [None]
  - ARTHRITIS [None]
  - HYPERTENSION [None]
  - PARAESTHESIA [None]
  - ANGINA PECTORIS [None]
  - HEADACHE [None]
  - CHEST PAIN [None]
  - THROAT TIGHTNESS [None]
  - BLINDNESS [None]
